FAERS Safety Report 17287376 (Version 1)
Quarter: 2020Q1

REPORT INFORMATION
  Report Type: Spontaneous
  Country: FR (occurrence: FR)
  Receive Date: 20200120
  Receipt Date: 20200120
  Transmission Date: 20200409
  Serious: Yes (Hospitalization)
  Sender: FDA-Public Use
  Company Number: FR-TEVA-2020-FR-1169164

PATIENT
  Age: 35 Year
  Sex: Female

DRUGS (1)
  1. AMOXICILLINE TEVA 500 MG, GELULE [Suspect]
     Active Substance: AMOXICILLIN
     Indication: INFECTION
     Dosage: 6 DOSAGE FORMS
     Route: 048
     Dates: start: 20191213, end: 20191214

REACTIONS (1)
  - Face oedema [Recovered/Resolved]

NARRATIVE: CASE EVENT DATE: 20191214
